FAERS Safety Report 7346389-5 (Version None)
Quarter: 2011Q1

REPORT INFORMATION
  Report Type: 
  Country: None (occurrence: None)
  Receive Date: 20110301
  Receipt Date: 20110216
  Transmission Date: 20110831
  Serious: Yes (Death)
  Sender: FDA-Public Use
  Company Number: 2011BN000010

PATIENT
  Age: 77 Year
  Sex: Female

DRUGS (5)
  1. EPOETIN ALFA [Concomitant]
  2. PRFEDNISONE [Concomitant]
  3. MELPHALAN HYDROCHLORIDE [Suspect]
     Indication: MULTIPLE MYELOMA
     Dosage: 0.25 MG/KG/QD
     Dates: start: 20050101
  4. ZOLENDRONATE [Concomitant]
  5. DEXAMETHASONE [Concomitant]

REACTIONS (2)
  - MYELODYSPLASTIC SYNDROME [None]
  - CARDIAC FAILURE CONGESTIVE [None]
